FAERS Safety Report 23757812 (Version 2)
Quarter: 2024Q2

REPORT INFORMATION
  Report Type: Spontaneous
  Country: ES (occurrence: ES)
  Receive Date: 20240418
  Receipt Date: 20240503
  Transmission Date: 20240716
  Serious: Yes (Other)
  Sender: FDA-Public Use
  Company Number: ES-BAYER-2024A057043

PATIENT
  Age: 14 Year
  Sex: Female

DRUGS (1)
  1. STIVARGA [Suspect]
     Active Substance: REGORAFENIB\REGORAFENIB MONOHYDRATE
     Indication: Ewing^s sarcoma
     Dosage: UNK
     Dates: start: 20230323, end: 20240408

REACTIONS (2)
  - Ewing^s sarcoma [None]
  - Off label use [None]
